FAERS Safety Report 22353853 (Version 1)
Quarter: 2023Q2

REPORT INFORMATION
  Report Type: Spontaneous
  Country: US (occurrence: None)
  Receive Date: 20230523
  Receipt Date: 20230523
  Transmission Date: 20230722
  Serious: Yes (Other)
  Sender: FDA-Public Use
  Company Number: US-INFO-20230082

PATIENT
  Age: 7 Year
  Sex: Female

DRUGS (1)
  1. ZOLEDRONIC ACID [Suspect]
     Active Substance: ZOLEDRONIC ACID
     Indication: Osteogenesis imperfecta
     Dosage: 4 MG ZOLEDRONATE INTRAVENOUSLY 17 TIMES OVER 3 YEARS ; IN TOTAL
     Route: 040

REACTIONS (2)
  - Osteopetrosis [Unknown]
  - Off label use [Unknown]
